FAERS Safety Report 4486919-4 (Version None)
Quarter: 2004Q3

REPORT INFORMATION
  Report Type: 
  Country: None (occurrence: None)
  Receive Date: 20040921
  Receipt Date: 20031007
  Transmission Date: 20050211
  Serious: Yes (Hospitalization, Other)
  Sender: FDA-Public Use
  Company Number: 163-20785-03100219

PATIENT
  Age: 56 Year
  Sex: Female

DRUGS (8)
  1. THALOMID [Suspect]
     Indication: MULTIPLE MYELOMA
     Dosage: 50-100 MG, QHS, ORAL
     Route: 048
     Dates: start: 20030701, end: 20030701
  2. THALOMID [Suspect]
     Indication: MULTIPLE MYELOMA
     Dosage: 50-100 MG, QHS, ORAL
     Route: 048
     Dates: start: 20030910, end: 20030922
  3. DEXAMETHASONE [Concomitant]
  4. OXYCONTIN [Concomitant]
  5. NEXIUM [Concomitant]
  6. ALLOPURINOL [Concomitant]
  7. SEPTRA DS [Concomitant]
  8. COUMADIN [Concomitant]

REACTIONS (4)
  - ASTHENIA [None]
  - CANDIDIASIS [None]
  - CONVULSION [None]
  - PSEUDOMONAL BACTERAEMIA [None]
